FAERS Safety Report 5548393-6 (Version None)
Quarter: 2007Q4

REPORT INFORMATION
  Report Type: 
  Country: None (occurrence: None)
  Receive Date: 20071206
  Receipt Date: 20071127
  Transmission Date: 20080405
  Serious: Yes (Hospitalization)
  Sender: FDA-Public Use
  Company Number: 2007SP023870

PATIENT
  Age: 61 Year
  Sex: Male
  Weight: 62 kg

DRUGS (5)
  1. TEMOZOLOMIDE (S-P) (TEMOOLOMIDE) [Suspect]
     Indication: COLORECTAL CANCER
     Dosage: 265 MG
     Dates: start: 20071017
  2. ONDANSETRON [Concomitant]
  3. METOCHLOPRAMIDE [Concomitant]
  4. ACETAMINOPHEN [Concomitant]
  5. AUGMENTIN '250' [Concomitant]

REACTIONS (1)
  - PLEURAL EFFUSION [None]
